FAERS Safety Report 5410623-9 (Version None)
Quarter: 2007Q3

REPORT INFORMATION
  Report Type: 
  Country: None (occurrence: None)
  Receive Date: 20070810
  Receipt Date: 20070426
  Transmission Date: 20080115
  Serious: No
  Sender: FDA-Public Use
  Company Number: A0648079A

PATIENT
  Sex: Female

DRUGS (2)
  1. PAXIL [Suspect]
     Indication: DRUG USE FOR UNKNOWN INDICATION
     Dates: end: 20070401
  2. WELLBUTRIN XL [Suspect]
     Indication: DRUG USE FOR UNKNOWN INDICATION
     Dates: end: 20070401

REACTIONS (1)
  - MALAISE [None]
